FAERS Safety Report 9730356 (Version 2)
Quarter: 2014Q1

REPORT INFORMATION
  Report Type: Spontaneous
  Country: US (occurrence: US)
  Receive Date: 20131202
  Receipt Date: 20140310
  Transmission Date: 20141002
  Serious: Yes (Hospitalization, Disabling, Other)
  Sender: FDA-Public Use
  Company Number: US-JNJFOC-20131116270

PATIENT
  Age: 22 Year
  Sex: Male

DRUGS (5)
  1. REMICADE [Suspect]
     Indication: CROHN^S DISEASE
     Route: 042
     Dates: start: 20140221
  2. REMICADE [Suspect]
     Indication: CROHN^S DISEASE
     Route: 042
     Dates: start: 20140121
  3. REMICADE [Suspect]
     Indication: CROHN^S DISEASE
     Route: 042
     Dates: start: 20130816
  4. PREDNISONE [Concomitant]
     Indication: CROHN^S DISEASE
     Dosage: DOSE VARIES
     Route: 065
     Dates: start: 201305
  5. CORTENEMA [Concomitant]
     Indication: CROHN^S DISEASE
     Route: 065
     Dates: start: 201307, end: 201309

REACTIONS (2)
  - Cerebrovascular accident [Recovered/Resolved with Sequelae]
  - Clostridium difficile infection [Recovered/Resolved]
